FAERS Safety Report 6388708-2 (Version None)
Quarter: 2009Q4

REPORT INFORMATION
  Report Type: 
  Country: None (occurrence: None)
  Receive Date: 20091001
  Receipt Date: 20090924
  Transmission Date: 20100525
  Serious: Yes (Hospitalization)
  Sender: FDA-Public Use
  Company Number: FABR-1000916

PATIENT
  Age: 42 Year
  Sex: Male
  Weight: 75 kg

DRUGS (5)
  1. FABRAZYME [Suspect]
     Indication: FABRY'S DISEASE
     Dosage: 75 MG, Q2W, INTRAVENOUS
     Route: 042
     Dates: start: 20030506
  2. TEGRETOL [Concomitant]
  3. FLUOXETIN (FLUOXETINE HYDROCHLORIDE) [Concomitant]
  4. ATORVASTATIN CALCIUM [Concomitant]
  5. CODEINE SUL TAB [Concomitant]

REACTIONS (5)
  - CELLULITIS [None]
  - FABRY'S DISEASE [None]
  - MALAISE [None]
  - PAIN IN EXTREMITY [None]
  - PYREXIA [None]
